FAERS Safety Report 13036964 (Version 1)
Quarter: 2016Q4

REPORT INFORMATION
  Report Type: Spontaneous
  Country: US (occurrence: US)
  Receive Date: 20161216
  Receipt Date: 20161216
  Transmission Date: 20170207
  Serious: Yes (Hospitalization)
  Sender: FDA-Public Use
  Company Number: US-PFIZER INC-2016575284

PATIENT
  Age: 50 Year
  Sex: Female

DRUGS (2)
  1. CABERGOLINE. [Suspect]
     Active Substance: CABERGOLINE
     Dosage: DOSE DOUBLED
  2. CABERGOLINE. [Suspect]
     Active Substance: CABERGOLINE
     Indication: GALACTORRHOEA
     Dosage: 0.25 MG, 2X/DAY

REACTIONS (1)
  - Psychotic disorder [Recovered/Resolved]
